FAERS Safety Report 18206933 (Version 1)
Quarter: 2020Q3

REPORT INFORMATION
  Report Type: Spontaneous
  Country: JP (occurrence: JP)
  Receive Date: 20200828
  Receipt Date: 20200828
  Transmission Date: 20201103
  Serious: Yes (Death)
  Sender: FDA-Public Use
  Company Number: JP-PFIZER INC-2020331008

PATIENT
  Age: 61 Year
  Sex: Male

DRUGS (12)
  1. OXALIPLATIN. [Suspect]
     Active Substance: OXALIPLATIN
     Indication: COLON CANCER STAGE IV
     Dosage: 130 MG/M2, DAILY(1 DAY) (THREE COURSES)
     Route: 048
     Dates: start: 2019
  2. CAPECITABINE. [Suspect]
     Active Substance: CAPECITABINE
     Indication: COLON CANCER STAGE IV
     Dosage: UNK, CYCLIC(THREE COURSES)
     Route: 048
     Dates: start: 2019
  3. BEVACIZUMAB. [Concomitant]
     Active Substance: BEVACIZUMAB
     Indication: COLON CANCER STAGE IV
     Dosage: UNK, CYCLIC (3,000MG/BODY/DAY 2 WEEKS)
     Route: 048
     Dates: start: 2019
  4. IRINOTECAN HCL [Suspect]
     Active Substance: IRINOTECAN HYDROCHLORIDE
     Indication: COLON CANCER STAGE IV
     Dosage: 150 MG/M2, DAILY (1 DAY/TWO WEEKS)
     Route: 048
     Dates: start: 2019
  5. HEPARIN [Concomitant]
     Active Substance: HEPARIN SODIUM
     Indication: MESENTERIC ARTERY EMBOLISM
     Dosage: 10000 IU, DAILY(CONTINUOUS INFUSION)
  6. HEPARIN [Concomitant]
     Active Substance: HEPARIN SODIUM
     Dosage: 20000 IU, DAILY
     Route: 042
  7. BEVACIZUMAB. [Concomitant]
     Active Substance: BEVACIZUMAB
     Dosage: 7.5 MG/KG, DAILY (1 DAY, THREE WEEKS FOR ONE COURSE)
     Route: 048
  8. HEPARIN [Concomitant]
     Active Substance: HEPARIN SODIUM
     Indication: ANTICOAGULANT THERAPY
     Dosage: 2500 IU, DAILY
     Dates: start: 2019
  9. BAYASPIRIN [Concomitant]
     Active Substance: ASPIRIN
     Indication: MESENTERIC ARTERY EMBOLISM
     Dosage: 100 MG(SUBACUTE PHASE)
     Route: 048
     Dates: start: 2019
  10. HEPARIN [Concomitant]
     Active Substance: HEPARIN SODIUM
     Dosage: 15000 IU, DAILY
     Route: 042
  11. TS?1 [Suspect]
     Active Substance: GIMERACIL\OTERACIL\TEGAFUR
     Indication: COLON CANCER STAGE IV
     Dosage: UNK, DAILY (120 MG/BODY/DAY, TWO WEEKS, ONE WEEK DRUG WITHDRAWAL, THREE WEEKS FOR ONE COURSE)
     Route: 048
     Dates: start: 2019
  12. EDOXABAN TOSILATE [Concomitant]
     Active Substance: EDOXABAN TOSYLATE
     Indication: MESENTERIC ARTERY EMBOLISM
     Dosage: 60 MG(SUBACUTE PHASE)
     Route: 048

REACTIONS (1)
  - Neoplasm progression [Fatal]

NARRATIVE: CASE EVENT DATE: 2019
